FAERS Safety Report 8198698-8 (Version None)
Quarter: 2012Q1

REPORT INFORMATION
  Report Type: 
  Country: None (occurrence: None)
  Receive Date: 20120307
  Receipt Date: 20120223
  Transmission Date: 20120608
  Serious: No
  Sender: FDA-Public Use
  Company Number: DSA_47697_2011

PATIENT
  Sex: Male
  Weight: 105.2 kg

DRUGS (13)
  1. PANTOPRAZOLE [Concomitant]
  2. CARDIZEM CD [Suspect]
     Indication: SUPRAVENTRICULAR TACHYCARDIA
     Dosage: 240 MG DAILY, ORAL
     Route: 048
     Dates: start: 20021119
  3. CARDIZEM CD [Suspect]
     Indication: ATRIAL FIBRILLATION
     Dosage: 240 MG DAILY, ORAL
     Route: 048
     Dates: start: 20021119
  4. ATORVASTATIN [Suspect]
     Indication: ATRIAL FIBRILLATION
     Dosage: 40 MG DAILY, ORAL
     Route: 048
  5. ATORVASTATIN [Suspect]
     Indication: SUPRAVENTRICULAR TACHYCARDIA
     Dosage: 40 MG DAILY, ORAL
     Route: 048
  6. CELEXA [Suspect]
     Indication: DEPRESSION
     Dosage: 10 MG DIALY, ORAL
     Route: 048
     Dates: start: 20060923
  7. TESTOSTERONE [Concomitant]
  8. ASPIRIN [Concomitant]
  9. SIMVASTATIN [Suspect]
     Indication: HYPERLIPIDAEMIA
     Dosage: 80 MG DAILY, ORAL
     Route: 048
     Dates: start: 20060923
  10. SIMVASTATIN [Suspect]
     Indication: ATRIAL FIBRILLATION
     Dosage: 80 MG DAILY, ORAL
     Route: 048
     Dates: start: 20060923
  11. SIMVASTATIN [Suspect]
     Indication: SUPRAVENTRICULAR TACHYCARDIA
     Dosage: 80 MG DAILY, ORAL
     Route: 048
     Dates: start: 20060923
  12. EZETIMIBE [Concomitant]
  13. ATENOLOL [Concomitant]

REACTIONS (10)
  - SERUM FERRITIN DECREASED [None]
  - HICCUPS [None]
  - MYOCLONUS [None]
  - DRUG INTERACTION [None]
  - MUSCLE TWITCHING [None]
  - IRON BINDING CAPACITY TOTAL INCREASED [None]
  - STEREOTYPY [None]
  - DEPRESSED LEVEL OF CONSCIOUSNESS [None]
  - DYSKINESIA [None]
  - SLEEP APNOEA SYNDROME [None]
